FAERS Safety Report 5282003-0 (Version None)
Quarter: 2007Q1

REPORT INFORMATION
  Report Type: 
  Country: None (occurrence: None)
  Receive Date: 20070330
  Receipt Date: 20070323
  Transmission Date: 20070707
  Serious: Yes (Life-Threatening, Hospitalization, Other)
  Sender: FDA-Public Use
  Company Number: DE-ELI_LILLY_AND_COMPANY-DE200703004542

PATIENT
  Age: 78 Year
  Sex: Male

DRUGS (13)
  1. GEMZAR [Suspect]
     Indication: PANCREATIC CARCINOMA
     Dosage: 1000 MG/M2, UNK
     Route: 042
     Dates: start: 20070112
  2. GEMZAR [Suspect]
     Dosage: 1000 MG/M2, UNK
     Route: 042
     Dates: start: 20070215
  3. GEMZAR [Suspect]
     Dosage: 1000 MG/M2, UNK
     Route: 042
     Dates: start: 20070222
  4. GEMZAR [Suspect]
     Dosage: 1000 MG/M2, UNK
     Route: 042
     Dates: start: 20070315
  5. GEMZAR [Suspect]
     Dosage: 1000 MG/M2, UNK
     Route: 042
     Dates: start: 20070322
  6. GEMZAR [Suspect]
     Dosage: 1000 MG/M2, UNK
     Route: 042
     Dates: start: 20070301
  7. PANTOZOL [Concomitant]
     Dosage: 40 MG, 2/D
     Route: 048
  8. LEVOTHYROXINE SODIUM [Concomitant]
     Dosage: 100 UNK, UNK
  9. NORVASC [Concomitant]
     Dosage: 5 MG, 2/D
     Route: 048
  10. METOPROLOL SUCCINATE [Concomitant]
     Dosage: 10 MG, DAILY (1/D)
  11. KAMILLOSAN [Concomitant]
  12. MOVICOL [Concomitant]
  13. KREON [Concomitant]

REACTIONS (5)
  - PNEUMONIA [None]
  - PYREXIA [None]
  - RENAL FAILURE ACUTE [None]
  - RENAL TUBULAR NECROSIS [None]
  - URINARY TRACT INFECTION [None]
